FAERS Safety Report 10592713 (Version 2)
Quarter: 2014Q4

REPORT INFORMATION
  Report Type: Spontaneous
  Country: IN (occurrence: IN)
  Receive Date: 20141119
  Receipt Date: 20141119
  Transmission Date: 20150529
  Serious: Yes (Other)
  Sender: FDA-Public Use
  Company Number: IN-NOVOPROD-428478

PATIENT
  Sex: Female

DRUGS (1)
  1. MIXTARD HUMAN 70/30 [Suspect]
     Active Substance: INSULIN HUMAN
     Indication: PRODUCT USED FOR UNKNOWN INDICATION
     Dosage: TWICE DAILY
     Route: 065

REACTIONS (1)
  - Loss of consciousness [Unknown]
